FAERS Safety Report 17855367 (Version 1)
Quarter: 2020Q2

REPORT INFORMATION
  Report Type: Spontaneous
  Country: US (occurrence: US)
  Receive Date: 20200602
  Receipt Date: 20200602
  Transmission Date: 20200714
  Serious: Yes (Hospitalization)
  Sender: FDA-Public Use
  Company Number: None

PATIENT
  Sex: Male

DRUGS (16)
  1. ASPIRIN. [Suspect]
     Active Substance: ASPIRIN
  2. PRADAXA [Concomitant]
     Active Substance: DABIGATRAN ETEXILATE MESYLATE
  3. VIT C ZOCOR [Concomitant]
  4. MYCOPHENOLATE 500MG [Suspect]
     Active Substance: MYCOPHENOLIC ACID
     Indication: RENAL TRANSPLANT
     Route: 048
     Dates: start: 20131011
  5. CALCIUM [Suspect]
     Active Substance: CALCIUM
  6. GARLIC. [Suspect]
     Active Substance: GARLIC
  7. ANDROGEL [Suspect]
     Active Substance: TESTOSTERONE
  8. COD LIVER [Suspect]
     Active Substance: COD LIVER OIL
  9. CARAFATE [Suspect]
     Active Substance: SUCRALFATE
  10. OMEGA 3 [Concomitant]
     Active Substance: OMEGA-3 FATTY ACIDS
  11. PREVACID [Concomitant]
     Active Substance: LANSOPRAZOLE
  12. TOPROL XL [Concomitant]
     Active Substance: METOPROLOL SUCCINATE
  13. MULTI VI [Concomitant]
  14. TACROLIMUS 1 MG [Suspect]
     Active Substance: TACROLIMUS
     Indication: RENAL TRANSPLANT
     Route: 048
     Dates: start: 20131011
  15. ACCUPRIL [Suspect]
     Active Substance: QUINAPRIL HYDROCHLORIDE
  16. FLOMAX [Suspect]
     Active Substance: TAMSULOSIN HYDROCHLORIDE

REACTIONS (1)
  - Hospitalisation [None]
